FAERS Safety Report 11409989 (Version 1)
Quarter: 2015Q3

REPORT INFORMATION
  Report Type: Report from Study
  Country: US (occurrence: US)
  Receive Date: 20150824
  Receipt Date: 20150824
  Transmission Date: 20151125
  Serious: Yes (Other)
  Sender: FDA-Public Use
  Company Number: US-EMD SERONO-7189866

PATIENT
  Sex: Female

DRUGS (1)
  1. REBIF [Suspect]
     Active Substance: INTERFERON BETA-1A
     Indication: MULTIPLE SCLEROSIS
     Route: 058
     Dates: start: 20100119, end: 20150803

REACTIONS (4)
  - Morbid thoughts [Not Recovered/Not Resolved]
  - Coronary artery occlusion [Unknown]
  - Anxiety [Not Recovered/Not Resolved]
  - Injection site pain [Recovering/Resolving]
